FAERS Safety Report 10261369 (Version 1)
Quarter: 2014Q2

REPORT INFORMATION
  Report Type: Spontaneous
  Country: US (occurrence: US)
  Receive Date: 20140626
  Receipt Date: 20140626
  Transmission Date: 20141212
  Serious: Yes (Hospitalization)
  Sender: FDA-Public Use
  Company Number: US-MYLANLABS-2013S1017174

PATIENT
  Age: 87 Year
  Sex: Male
  Weight: 62.14 kg

DRUGS (3)
  1. METHOTREXATE TABLETS, USP [Suspect]
     Indication: RHEUMATOID ARTHRITIS
     Route: 048
     Dates: start: 2008, end: 201305
  2. PRILOSEC [Concomitant]
  3. PREDNISONE [Concomitant]

REACTIONS (2)
  - Brain neoplasm [Not Recovered/Not Resolved]
  - Pneumonia [Not Recovered/Not Resolved]
